FAERS Safety Report 17915703 (Version 1)
Quarter: 2020Q2

REPORT INFORMATION
  Report Type: Spontaneous
  Country: TR (occurrence: TR)
  Receive Date: 20200619
  Receipt Date: 20200619
  Transmission Date: 20200714
  Serious: Yes (Hospitalization)
  Sender: FDA-Public Use
  Company Number: TR-TEVA-2020-TR-1790146

PATIENT
  Age: 15 Year
  Sex: Female

DRUGS (4)
  1. ESCHERICHIA COLI L-ASPARAGINASE [Suspect]
     Active Substance: ASPARAGINASE
     Indication: B-CELL TYPE ACUTE LEUKAEMIA
     Dosage: 5000 IU/M2 EVERY 3 DAYS
     Route: 042
  2. DAUNORUBICIN [Concomitant]
     Active Substance: DAUNORUBICIN
     Indication: B-CELL TYPE ACUTE LEUKAEMIA
     Route: 042
  3. VINCRISTINE [Concomitant]
     Active Substance: VINCRISTINE
     Indication: B-CELL TYPE ACUTE LEUKAEMIA
     Route: 042
  4. PREDNISOLONE. [Suspect]
     Active Substance: PREDNISOLONE
     Indication: B-CELL TYPE ACUTE LEUKAEMIA
     Dosage: 60 MG/M2 DAILY; IN 3 DOSES
     Route: 065

REACTIONS (2)
  - Pancreatitis acute [Recovered/Resolved]
  - Hyperglycaemia [Recovered/Resolved]
